FAERS Safety Report 15739732 (Version 2)
Quarter: 2018Q4

REPORT INFORMATION
  Report Type: Report from Study
  Country: US (occurrence: US)
  Receive Date: 20181219
  Receipt Date: 20181226
  Transmission Date: 20190205
  Serious: Yes (Hospitalization)
  Sender: FDA-Public Use
  Company Number: US-JNJFOC-20181209584

PATIENT
  Age: 72 Year
  Sex: Male

DRUGS (2)
  1. IMBRUVICA [Suspect]
     Active Substance: IBRUTINIB
     Indication: CHRONIC LYMPHOCYTIC LEUKAEMIA
     Dosage: 420 MG, QD
     Route: 048
     Dates: start: 20181123, end: 2018
  2. IMBRUVICA [Suspect]
     Active Substance: IBRUTINIB
     Indication: CHRONIC LYMPHOCYTIC LEUKAEMIA
     Dosage: 420 MG, QD
     Route: 048
     Dates: start: 20181120, end: 2018

REACTIONS (10)
  - Product physical issue [Unknown]
  - Thrombosis [Not Recovered/Not Resolved]
  - Dysphagia [Unknown]
  - Malaise [Unknown]
  - Vascular occlusion [Not Recovered/Not Resolved]
  - Blood potassium decreased [Unknown]
  - Nausea [Unknown]
  - Weight decreased [Unknown]
  - Blood lactic acid increased [Unknown]
  - Dehydration [Unknown]

NARRATIVE: CASE EVENT DATE: 20181123
